FAERS Safety Report 8824792 (Version 2)
Quarter: 2013Q2

REPORT INFORMATION
  Report Type: Report from Study
  Country: GB (occurrence: GB)
  Receive Date: 20121004
  Receipt Date: 20130610
  Transmission Date: 20140414
  Serious: Yes (Hospitalization, Other)
  Sender: FDA-Public Use
  Company Number: GB-JNJFOC-20121002014

PATIENT
  Age: 55 Year
  Sex: Male
  Weight: 65 kg

DRUGS (1)
  1. REMICADE [Suspect]
     Indication: ANKYLOSING SPONDYLITIS
     Route: 042
     Dates: start: 20090716, end: 20090716

REACTIONS (5)
  - Syncope [Recovering/Resolving]
  - Neck pain [Unknown]
  - Arthralgia [Unknown]
  - Stress [Unknown]
  - Palpitations [Unknown]
